FAERS Safety Report 21080259 (Version 2)
Quarter: 2022Q3

REPORT INFORMATION
  Report Type: Spontaneous
  Country: US (occurrence: US)
  Receive Date: 20220714
  Receipt Date: 20220714
  Transmission Date: 20221026
  Serious: Yes (Other)
  Sender: FDA-Public Use
  Company Number: US-PFIZER INC-HQWYE685010JUL06

PATIENT
  Age: 21 Year
  Sex: Female
  Weight: 99.8 kg

DRUGS (3)
  1. PENICILLIN G BENZATHINE [Suspect]
     Active Substance: PENICILLIN G BENZATHINE
     Indication: Laryngeal pain
     Dosage: UNK, SINGLE
     Route: 030
     Dates: start: 1970, end: 1970
  2. PENICILLIN G BENZATHINE [Suspect]
     Active Substance: PENICILLIN G BENZATHINE
     Indication: Oropharyngeal pain
  3. PENICILLIN G PROCAINE [Suspect]
     Active Substance: PENICILLIN G PROCAINE
     Indication: Oropharyngeal pain
     Dosage: UNK, SINGLE
     Dates: start: 1970, end: 1970

REACTIONS (7)
  - Hoigne^s syndrome [Recovered/Resolved]
  - Dyspnoea [Recovered/Resolved]
  - Heart rate increased [Recovered/Resolved]
  - Dysgeusia [Recovered/Resolved]
  - Tinnitus [Recovered/Resolved]
  - Hallucination [Recovered/Resolved]
  - Anxiety [Recovered/Resolved]

NARRATIVE: CASE EVENT DATE: 19700101
